FAERS Safety Report 23863477 (Version 4)
Quarter: 2025Q2

REPORT INFORMATION
  Report Type: Report from Study
  Country: JP (occurrence: JP)
  Receive Date: 20240516
  Receipt Date: 20250429
  Transmission Date: 20250716
  Serious: Yes (Hospitalization, Other)
  Sender: ARGENX BVBA
  Company Number: JP-ARGENX-2024-ARGX-JP003087AA

PATIENT

DRUGS (18)
  1. EFGARTIGIMOD ALFA [Suspect]
     Active Substance: EFGARTIGIMOD ALFA
     Indication: Immune thrombocytopenia
     Route: 042
     Dates: start: 20240416, end: 20240531
  2. PREDNISOLONE [Concomitant]
     Active Substance: PREDNISOLONE
     Indication: Immune thrombocytopenia
     Dosage: 60 MG, DAILY
     Route: 048
     Dates: end: 20240423
  3. PREDNISOLONE [Concomitant]
     Active Substance: PREDNISOLONE
     Dosage: 50 MG, DAILY
     Route: 048
     Dates: start: 20240424, end: 20240510
  4. PREDNISOLONE [Concomitant]
     Active Substance: PREDNISOLONE
     Dosage: 40 MG, DAILY
     Route: 048
     Dates: start: 20240511
  5. PREDNISOLONE [Concomitant]
     Active Substance: PREDNISOLONE
     Dosage: 35 MG, DAILY
     Route: 048
     Dates: start: 20240601, end: 20240730
  6. PREDNISOLONE [Concomitant]
     Active Substance: PREDNISOLONE
     Dosage: 30 MG, DAILY
     Route: 048
     Dates: start: 20240731, end: 20240806
  7. PREDNISOLONE [Concomitant]
     Active Substance: PREDNISOLONE
     Dosage: 25 MG, DAILY
     Route: 065
     Dates: start: 20240807, end: 20240813
  8. PREDNISOLONE [Concomitant]
     Active Substance: PREDNISOLONE
     Dosage: 20 MG, DAILY
     Route: 048
     Dates: start: 20240814
  9. PREDNISOLONE [Concomitant]
     Active Substance: PREDNISOLONE
     Dosage: 15 MG, DAILY
     Route: 048
     Dates: start: 20240821, end: 20240827
  10. PREDNISOLONE [Concomitant]
     Active Substance: PREDNISOLONE
     Dosage: 10 MG, DAILY
     Route: 048
     Dates: start: 20240828, end: 20240903
  11. PREDNISOLONE [Concomitant]
     Active Substance: PREDNISOLONE
     Dosage: 5 MG, DAILY
     Route: 048
     Dates: start: 20240904, end: 20240910
  12. PREDNISOLONE [Concomitant]
     Active Substance: PREDNISOLONE
     Dosage: 2.5 MG, DAILY
     Route: 048
     Dates: start: 20240911, end: 20240917
  13. ELTROMBOPAG OLAMINE [Concomitant]
     Active Substance: ELTROMBOPAG OLAMINE
     Indication: Immune thrombocytopenia
     Dosage: 50 MG, DAILY
     Route: 048
     Dates: end: 20240617
  14. FOSTAMATINIB [Concomitant]
     Active Substance: FOSTAMATINIB
     Indication: Immune thrombocytopenia
     Dosage: 100 MG, BID
     Route: 048
     Dates: end: 20240924
  15. FOSTAMATINIB [Concomitant]
     Active Substance: FOSTAMATINIB
     Dosage: 150 MG, DAILY
     Route: 048
     Dates: start: 20240925, end: 20241001
  16. FOSTAMATINIB [Concomitant]
     Active Substance: FOSTAMATINIB
     Dosage: 100 MG, DAILY
     Route: 048
     Dates: start: 20241002, end: 20241008
  17. AMLODIPINE [Concomitant]
     Active Substance: AMLODIPINE BESYLATE
     Indication: Product used for unknown indication
     Dosage: 5 MG, BID
     Route: 048
  18. OLMESARTAN [Concomitant]
     Active Substance: OLMESARTAN
     Indication: Product used for unknown indication
     Dosage: 20 MG, DAILY
     Route: 048

REACTIONS (5)
  - Pulmonary alveolar haemorrhage [Recovered/Resolved]
  - Gastrointestinal haemorrhage [Recovered/Resolved]
  - Immune thrombocytopenia [Recovering/Resolving]
  - Immune thrombocytopenia [Unknown]
  - Therapy non-responder [Unknown]

NARRATIVE: CASE EVENT DATE: 20240430
